FAERS Safety Report 8779861 (Version 1)
Quarter: 2012Q4

REPORT INFORMATION
  Report Type: Spontaneous
  Country: US (occurrence: None)
  Receive Date: 20120905
  Receipt Date: 20120905
  Transmission Date: 20130627
  Serious: Yes (Disabling)
  Sender: FDA-Public Use
  Company Number: None

PATIENT
  Age: 51 Year
  Sex: Female
  Weight: 70.31 kg

DRUGS (4)
  1. FLUTICASONE PROPIONATE NASAL [Suspect]
     Indication: NASAL DISORDER NOS
     Dosage: 2 sprays 
8 months a year
     Dates: start: 20090101, end: 20120803
  2. FLUTICASONE PROPIONATE NASAL [Suspect]
     Indication: PROPHYLAXIS
     Dosage: 2 sprays 
8 months a year
     Dates: start: 20090101, end: 20120803
  3. FLUTICASONE PROPIONATE NASAL [Suspect]
     Indication: SINUS INFECTION
     Dosage: 2 sprays 
8 months a year
     Dates: start: 20090101, end: 20120803
  4. FLUTICASONE PROPIONATE NASAL [Suspect]
     Indication: HEADACHE
     Dosage: 2 sprays 
8 months a year
     Dates: start: 20090101, end: 20120803

REACTIONS (2)
  - Ageusia [None]
  - Anosmia [None]
